FAERS Safety Report 13464395 (Version 1)
Quarter: 2017Q2

REPORT INFORMATION
  Report Type: Spontaneous
  Country: US (occurrence: US)
  Receive Date: 20170420
  Receipt Date: 20170420
  Transmission Date: 20170830
  Serious: Yes (Hospitalization, Other)
  Sender: FDA-Public Use
  Company Number: US-ROCHE-714512

PATIENT
  Age: 15 Year
  Sex: Male
  Weight: 77.1 kg

DRUGS (2)
  1. ACCUTANE [Suspect]
     Active Substance: ISOTRETINOIN
     Indication: ACNE
     Route: 065
     Dates: start: 20020914, end: 20020930
  2. DERMATOP [Concomitant]
     Active Substance: PREDNICARBATE
     Route: 065

REACTIONS (3)
  - Chapped lips [Unknown]
  - Inflammatory bowel disease [Unknown]
  - Colitis ulcerative [Unknown]

NARRATIVE: CASE EVENT DATE: 200209
